FAERS Safety Report 21119327 (Version 1)
Quarter: 2022Q3

REPORT INFORMATION
  Report Type: Spontaneous
  Country: US (occurrence: US)
  Receive Date: 20220722
  Receipt Date: 20220722
  Transmission Date: 20221026
  Serious: Yes (Other)
  Sender: FDA-Public Use
  Company Number: US-AcelRx Pharmaceuticals, Inc-ACEL20220175

PATIENT
  Age: 81 Year
  Sex: Female

DRUGS (1)
  1. DSUVIA [Suspect]
     Active Substance: SUFENTANIL
     Indication: Skin cosmetic procedure
     Route: 060

REACTIONS (2)
  - Respiratory depression [Recovered/Resolved]
  - Reversal of opiate activity [Recovered/Resolved]
